FAERS Safety Report 5423077-3 (Version None)
Quarter: 2007Q3

REPORT INFORMATION
  Report Type: 
  Country: None (occurrence: None)
  Receive Date: 20070821
  Receipt Date: 20070815
  Transmission Date: 20080115
  Serious: Yes (Other)
  Sender: FDA-Public Use
  Company Number: 235613K07USA

PATIENT
  Age: 44 Year
  Sex: Female

DRUGS (3)
  1. REBIF [Suspect]
     Indication: MULTIPLE SCLEROSIS
     Dosage: 44 MCG, 3 IN 1 WEEKS, SUBCUTANEOUS
     Route: 058
     Dates: start: 20050815
  2. NEURONTIN [Concomitant]
  3. ZOLOFT [Concomitant]

REACTIONS (4)
  - BONE DENSITY DECREASED [None]
  - LIPODYSTROPHY ACQUIRED [None]
  - MALIGNANT MELANOMA [None]
  - PRECANCEROUS SKIN LESION [None]
